FAERS Safety Report 23925387 (Version 1)
Quarter: 2024Q2

REPORT INFORMATION
  Report Type: Spontaneous
  Country: US (occurrence: None)
  Receive Date: 20240530
  Receipt Date: 20240530
  Transmission Date: 20240716
  Serious: Yes (Hospitalization)
  Sender: FDA-Public Use
  Company Number: None

PATIENT
  Age: 63 Year
  Sex: Female

DRUGS (1)
  1. RETACRIT [Suspect]
     Active Substance: EPOETIN ALFA-EPBX
     Indication: Anaemia
     Dosage: 2 TIMES A WEEK SUBCUTANEOUS
     Route: 058

REACTIONS (3)
  - Pericardial effusion [None]
  - Cardiac failure congestive [None]
  - Dialysis [None]

NARRATIVE: CASE EVENT DATE: 20240528
